FAERS Safety Report 5457166-4 (Version None)
Quarter: 2007Q3

REPORT INFORMATION
  Report Type: 
  Country: None (occurrence: None)
  Receive Date: 20070918
  Receipt Date: 20070319
  Transmission Date: 20080115
  Serious: Yes (Disabling)
  Sender: FDA-Public Use
  Company Number: US-ASTRAZENECA-2007AC00507

PATIENT
  Age: 25 Year
  Sex: Female

DRUGS (3)
  1. QUETIAPINE FUMARATE [Suspect]
     Indication: AGGRESSION
     Route: 048
  2. QUETIAPINE FUMARATE [Suspect]
     Dosage: INCREASED DOSE
     Route: 048
  3. CLOZAPINE [Concomitant]
     Indication: AGGRESSION
     Route: 048

REACTIONS (1)
  - DYSTONIA [None]
